FAERS Safety Report 13233719 (Version 1)
Quarter: 2017Q1

REPORT INFORMATION
  Report Type: Spontaneous
  Country: TN (occurrence: TN)
  Receive Date: 20170215
  Receipt Date: 20170215
  Transmission Date: 20170428
  Serious: Yes (Life-Threatening, Hospitalization)
  Sender: FDA-Public Use
  Company Number: TN-GLENMARK PHARMACEUTICALS-2017GMK026348

PATIENT
  Age: 36 Year
  Sex: Male

DRUGS (4)
  1. PIROXICAM. [Concomitant]
     Active Substance: PIROXICAM
     Indication: EPIGASTRIC DISCOMFORT
  2. RANITIDINE HYDROCHLORIDE. [Suspect]
     Active Substance: RANITIDINE HYDROCHLORIDE
     Indication: EPIGASTRIC DISCOMFORT
  3. RANITIDINE HYDROCHLORIDE. [Suspect]
     Active Substance: RANITIDINE HYDROCHLORIDE
     Indication: RENAL COLIC
     Dosage: 50 MG, SLOW INGTRAVENOUS BOLUS
     Route: 042
  4. PIROXICAM. [Concomitant]
     Active Substance: PIROXICAM
     Indication: RENAL COLIC
     Dosage: 20 MG, UNK
     Route: 030

REACTIONS (1)
  - Anaphylactic shock [Recovered/Resolved]
